FAERS Safety Report 6084848-6 (Version None)
Quarter: 2009Q1

REPORT INFORMATION
  Report Type: 
  Country: None (occurrence: None)
  Receive Date: 20090218
  Receipt Date: 20090206
  Transmission Date: 20090719
  Serious: Yes (Hospitalization)
  Sender: FDA-Public Use
  Company Number: 2009-191112-NL

PATIENT
  Age: 40 Year
  Sex: Female
  Weight: 102 kg

DRUGS (4)
  1. IMPLANON [Suspect]
     Indication: CONTRACEPTION
     Dosage: SUBDERMAL
     Route: 059
     Dates: start: 20060101
  2. LAMICTAL [Suspect]
     Indication: CONVULSION
     Dosage: 125 MG QD ORAL
     Route: 048
  3. DIPHENHYDRAMINE HCL [Concomitant]
  4. NABUMETONE [Concomitant]

REACTIONS (8)
  - CONDITION AGGRAVATED [None]
  - CONVULSION [None]
  - FEELING COLD [None]
  - HEADACHE [None]
  - MOOD SWINGS [None]
  - PREMATURE MENOPAUSE [None]
  - TONGUE BITING [None]
  - WEIGHT INCREASED [None]
